FAERS Safety Report 8854639 (Version 1)
Quarter: 2012Q4

REPORT INFORMATION
  Report Type: 
  Country: JP (occurrence: JP)
  Receive Date: 20121023
  Receipt Date: 20121023
  Transmission Date: 20130627
  Serious: Yes (Other)
  Sender: FDA-Public Use
  Company Number: JP-PFIZER INC-2012262847

PATIENT
  Age: 79 Year
  Sex: Female
  Weight: 52 kg

DRUGS (5)
  1. LORAZEPAM [Suspect]
     Dosage: 0.5 mg, 2x/day
     Route: 048
     Dates: end: 20120814
  2. AMLODIN [Suspect]
     Indication: HYPERTENSION
     Dosage: 2.5 mg, 1x/day
     Route: 048
     Dates: end: 20120814
  3. GASTER [Suspect]
     Dosage: 20 mg, 1x/day
     Route: 048
     Dates: end: 20120814
  4. ONE-ALPHA [Suspect]
     Indication: OSTEOPOROSIS
     Dosage: 1.0 ug, 1x/day
     Route: 048
     Dates: end: 20120814
  5. LENDORMIN [Suspect]
     Dosage: 0.25 mg, 1x/day
     Route: 048
     Dates: end: 20120814

REACTIONS (2)
  - Urinary tract infection [Unknown]
  - Dysuria [Recovering/Resolving]
